FAERS Safety Report 5333463-8 (Version None)
Quarter: 2007Q2

REPORT INFORMATION
  Report Type: 
  Country: None (occurrence: None)
  Receive Date: 20070522
  Receipt Date: 20070522
  Transmission Date: 20071010
  Serious: Yes (Hospitalization)
  Sender: FDA-Public Use
  Company Number: None

PATIENT
  Sex: Female
  Weight: 70.3075 kg

DRUGS (2)
  1. GEMCITABINE [Suspect]
     Indication: LEIOMYOSARCOMA
     Dosage: 1584 MILLIGRAMS DAY 1 + 8 Q21DAYS IV DRIP
     Route: 041
     Dates: start: 20070504, end: 20070510
  2. DOCETAXEL AVENTIS [Suspect]
     Indication: LEIOMYOSARCOMA
     Dosage: 132 MILLIGRAMS Q21DAYS IV DRIP
     Route: 041
     Dates: start: 20070504, end: 20070510

REACTIONS (7)
  - ATRIAL FIBRILLATION [None]
  - COLITIS [None]
  - DEHYDRATION [None]
  - MALAISE [None]
  - PYREXIA [None]
  - SUPRAVENTRICULAR EXTRASYSTOLES [None]
  - SUPRAVENTRICULAR TACHYCARDIA [None]
